FAERS Safety Report 4963375-0 (Version None)
Quarter: 2006Q1

REPORT INFORMATION
  Report Type: 
  Country: None (occurrence: None)
  Receive Date: 20060329
  Receipt Date: 20060321
  Transmission Date: 20060701
  Serious: Yes (Other)
  Sender: FDA-Public Use
  Company Number: 2006039333

PATIENT
  Age: 78 Year
  Sex: Female
  Weight: 58.0604 kg

DRUGS (5)
  1. LIPITOR [Suspect]
     Indication: BLOOD CHOLESTEROL INCREASED
     Dosage: 10 MG (10 MG, 1 IN 1 D)
     Dates: start: 19960101, end: 20060301
  2. NORVASC [Suspect]
     Indication: HYPERTENSION
     Dates: start: 19960101
  3. ECOTRIN (ACETYLSALICYLIC ACID) [Concomitant]
  4. TOPROL-XL [Concomitant]
  5. ALL OTHER THERAPEUTIC PRODUCTS (ALL OTHER THERAPEUTIC PRODUCTS) [Concomitant]

REACTIONS (6)
  - BLOOD TRIGLYCERIDES INCREASED [None]
  - CORONARY ARTERIAL STENT INSERTION [None]
  - CORONARY ARTERY SURGERY [None]
  - INSOMNIA [None]
  - MYALGIA [None]
  - THERAPY NON-RESPONDER [None]
